FAERS Safety Report 17704201 (Version 3)
Quarter: 2020Q2

REPORT INFORMATION
  Report Type: Spontaneous
  Country: JP (occurrence: JP)
  Receive Date: 20200424
  Receipt Date: 20200526
  Transmission Date: 20200714
  Serious: Yes (Other)
  Sender: FDA-Public Use
  Company Number: JP-ALLERGAN-2016558US

PATIENT
  Sex: Female
  Weight: 3.33 kg

DRUGS (1)
  1. URSODEOXYCHOLIC ACID - BP [Suspect]
     Active Substance: URSODIOL
     Indication: EXPOSURE DURING PREGNANCY
     Route: 064

REACTIONS (2)
  - Nonreassuring foetal heart rate pattern [Unknown]
  - Pregnancy [Unknown]
